FAERS Safety Report 9813943 (Version 2)
Quarter: 2014Q1

REPORT INFORMATION
  Report Type: Report from Study
  Country: US (occurrence: US)
  Receive Date: 20140113
  Receipt Date: 20140113
  Transmission Date: 20141002
  Serious: Yes (Other)
  Sender: FDA-Public Use
  Company Number: US-ASTRAZENECA-2013SE24858

PATIENT
  Age: 28 Year
  Sex: Male

DRUGS (1)
  1. SEROQUEL XR [Suspect]
     Route: 048
     Dates: start: 20121105

REACTIONS (3)
  - Suicidal behaviour [Not Recovered/Not Resolved]
  - Feeling abnormal [Unknown]
  - Drug dose omission [Not Recovered/Not Resolved]
